FAERS Safety Report 4727016-X (Version None)
Quarter: 2005Q3

REPORT INFORMATION
  Report Type: 
  Country: None (occurrence: None)
  Receive Date: 20050726
  Receipt Date: 20050714
  Transmission Date: 20060218
  Serious: Yes (Other)
  Sender: FDA-Public Use
  Company Number: 2005102800

PATIENT
  Sex: Female

DRUGS (2)
  1. DETROL LA [Suspect]
     Indication: ILL-DEFINED DISORDER
     Dosage: 4 MG (4 MG, 1 IN 1 D), ORAL
     Route: 048
  2. NEXIUM [Concomitant]

REACTIONS (4)
  - ASTHENIA [None]
  - BLOOD COUNT ABNORMAL [None]
  - HAEMATOCHEZIA [None]
  - ULCER [None]
